FAERS Safety Report 4873990-0 (Version None)
Quarter: 2006Q1

REPORT INFORMATION
  Report Type: 
  Country: None (occurrence: None)
  Receive Date: 20060106
  Receipt Date: 20051018
  Transmission Date: 20060701
  Serious: Yes (Other)
  Sender: FDA-Public Use
  Company Number: 2005SE05937

PATIENT
  Age: 20 Year
  Sex: Male
  Weight: 55.6 kg

DRUGS (4)
  1. SEROQUEL ENTEROTABLETS [Suspect]
     Indication: PSYCHOTIC DISORDER
     Dosage: 200 + 700 MG
     Route: 048
     Dates: start: 20050612, end: 20051019
  2. OXAPAX [Concomitant]
     Dosage: 3 X 15 MG PRN
     Route: 065
  3. TRUXAL [Concomitant]
     Route: 065
  4. TRUXAL [Concomitant]
     Route: 065

REACTIONS (7)
  - BONE MARROW FAILURE [None]
  - COAGULATION FACTOR VII LEVEL DECREASED [None]
  - COAGULATION FACTOR X LEVEL DECREASED [None]
  - GRANULOCYTE COUNT DECREASED [None]
  - LEUKOPENIA [None]
  - PROTHROMBIN LEVEL DECREASED [None]
  - THROMBOCYTOPENIA [None]
